FAERS Safety Report 7701794 (Version 4)
Quarter: 2014Q4

REPORT INFORMATION
  Report Type: Report from Study
  Country: DE (occurrence: DE)
  Receive Date: 20101209
  Receipt Date: 20141218
  Transmission Date: 20150529
  Serious: Yes (Hospitalization)
  Sender: FDA-Public Use
  Company Number: DE-ROCHE-745641

PATIENT
  Age: 69 Year
  Sex: Female
  Weight: 62 kg

DRUGS (9)
  1. BEVACIZUMAB [Suspect]
     Active Substance: BEVACIZUMAB
     Indication: BREAST CANCER
     Dosage: LAST DOSE PRIOR TO SAE: 23/NOV/2013
     Route: 042
  2. VINORELBINE [Suspect]
     Active Substance: VINORELBINE\VINORELBINE TARTRATE
     Indication: BREAST CANCER
     Dosage: LAST DOSE PRIOR TO SAE: 23/NOV/2010
     Route: 065
     Dates: start: 20101012
  3. NITRENDIPIN [Concomitant]
     Route: 065
  4. CAPECITABINE. [Suspect]
     Active Substance: CAPECITABINE
     Indication: BREAST CANCER
     Dosage: LAST DOSE PRIOR TO SAE: 23/NOV/2010
     Route: 048
  5. ENALAPRIL [Concomitant]
     Active Substance: ENALAPRIL
     Route: 065
  6. TAVEGIL [Concomitant]
     Active Substance: CLEMASTINE FUMARATE
     Route: 065
  7. PREDNISONE. [Concomitant]
     Active Substance: PREDNISONE
     Route: 065
     Dates: start: 20101123, end: 20101123
  8. CELLONDAN [Concomitant]
     Route: 065
     Dates: start: 20101123, end: 20101123
  9. RANITIN [Concomitant]
     Route: 065
     Dates: start: 20101123, end: 20101123

REACTIONS (1)
  - Vertigo [Recovered/Resolved]

NARRATIVE: CASE EVENT DATE: 20101130
